FAERS Safety Report 19483581 (Version 2)
Quarter: 2021Q3

REPORT INFORMATION
  Report Type: Report from Study
  Country: BE (occurrence: BE)
  Receive Date: 20210701
  Receipt Date: 20210810
  Transmission Date: 20211014
  Serious: No
  Sender: FDA-Public Use
  Company Number: BE-BRISTOL-MYERS SQUIBB COMPANY-BMS-2021-062435

PATIENT
  Age: 73 Year
  Sex: Male

DRUGS (1)
  1. APIXABAN [Suspect]
     Active Substance: APIXABAN
     Indication: CEREBROVASCULAR ACCIDENT PROPHYLAXIS
     Dosage: 5 MILLIGRAM, BID
     Route: 048
     Dates: start: 20210517

REACTIONS (1)
  - Fatigue [Unknown]

NARRATIVE: CASE EVENT DATE: 202106
